FAERS Safety Report 4951382-3 (Version None)
Quarter: 2006Q1

REPORT INFORMATION
  Report Type: 
  Country: None (occurrence: None)
  Receive Date: 20060323
  Receipt Date: 20060313
  Transmission Date: 20060701
  Serious: Yes (Hospitalization)
  Sender: FDA-Public Use
  Company Number: FR-BRISTOL-MYERS SQUIBB COMPANY-13312905

PATIENT
  Age: 76 Year
  Sex: Male

DRUGS (3)
  1. COUMADIN [Suspect]
     Route: 048
     Dates: start: 20051024, end: 20051029
  2. LOVENOX [Suspect]
     Dosage: 40 MG/D FROM 18-OCT-2005 TO 23-OCT-2005, THEN 120 MG/D FROM 24-OCT-2005 TO 29-OCT-2005
     Route: 058
     Dates: start: 20051018, end: 20051029
  3. ASPEGIC [Concomitant]
     Dates: start: 20051018, end: 20051025

REACTIONS (2)
  - CONVULSION [None]
  - HAEMATOMA [None]
